FAERS Safety Report 6075427-5 (Version None)
Quarter: 2009Q1

REPORT INFORMATION
  Report Type: 
  Country: None (occurrence: None)
  Receive Date: 20090212
  Receipt Date: 20090206
  Transmission Date: 20090719
  Serious: Yes (Other)
  Sender: FDA-Public Use
  Company Number: A0718453A

PATIENT
  Age: 59 Year
  Sex: Male
  Weight: 75 kg

DRUGS (5)
  1. AVANDIA [Suspect]
     Dates: start: 20010505, end: 20050311
  2. AVANDAMET [Suspect]
     Dates: start: 20010505, end: 20050311
  3. AVANDARYL [Suspect]
     Dates: start: 20010505, end: 20050311
  4. GLUCOPHAGE [Concomitant]
     Dates: start: 20010505, end: 20030501
  5. METFORMIN HCL [Concomitant]
     Dates: start: 20030214, end: 20041201

REACTIONS (3)
  - CARDIOVASCULAR DISORDER [None]
  - CHEST PAIN [None]
  - MYOCARDIAL INFARCTION [None]
